FAERS Safety Report 18646608 (Version 7)
Quarter: 2021Q1

REPORT INFORMATION
  Report Type: Report from Study
  Country: US (occurrence: US)
  Receive Date: 20201222
  Receipt Date: 20210301
  Transmission Date: 20210419
  Serious: Yes (Hospitalization, Other)
  Sender: FDA-Public Use
  Company Number: US-BIOVITRUM-2020US7585

PATIENT
  Sex: Male

DRUGS (9)
  1. SYNAGIS [Suspect]
     Active Substance: PALIVIZUMAB
     Indication: HYPERTENSION NEONATAL
     Dosage: 73 MG/0.73ML
     Route: 030
     Dates: start: 20201123
  2. SYNAGIS [Suspect]
     Active Substance: PALIVIZUMAB
     Route: 030
  3. AMLODIPINE [Concomitant]
     Active Substance: AMLODIPINE BESYLATE
  4. POLY?VI?FLOR [Concomitant]
  5. SYNAGIS [Suspect]
     Active Substance: PALIVIZUMAB
     Indication: ANTIVIRAL PROPHYLAXIS
     Route: 030
     Dates: start: 20201019
  6. MUPIROCIN. [Concomitant]
     Active Substance: MUPIROCIN
  7. GLYCOPYRROLATE. [Concomitant]
     Active Substance: GLYCOPYRROLATE
  8. TRIAMCINOLONE [Concomitant]
     Active Substance: TRIAMCINOLONE
  9. SODIUM CHLORIDE. [Concomitant]
     Active Substance: SODIUM CHLORIDE

REACTIONS (5)
  - Status epilepticus [Recovered/Resolved]
  - Inappropriate schedule of product administration [Unknown]
  - Oxygen saturation decreased [Recovered/Resolved]
  - Cough [Recovered/Resolved]
  - Product dose omission issue [Not Recovered/Not Resolved]
